FAERS Safety Report 4975910-7 (Version None)
Quarter: 2006Q2

REPORT INFORMATION
  Report Type: 
  Country: None (occurrence: None)
  Receive Date: 20060418
  Receipt Date: 20050823
  Transmission Date: 20061013
  Serious: Yes (Death)
  Sender: FDA-Public Use
  Company Number: US-MERCK-0508USA03801

PATIENT
  Age: 53 Year
  Sex: Male
  Weight: 109 kg

DRUGS (2)
  1. VIOXX [Suspect]
     Indication: RHEUMATOID ARTHRITIS
     Route: 048
     Dates: start: 20010126, end: 20020621
  2. CELEBREX [Concomitant]
     Route: 065

REACTIONS (10)
  - APNOEA [None]
  - ARTERIOSCLEROSIS [None]
  - CARDIO-RESPIRATORY ARREST [None]
  - CARDIOVASCULAR DISORDER [None]
  - COMPLETED SUICIDE [None]
  - HAEMORRHAGE INTRACRANIAL [None]
  - HEADACHE [None]
  - PULSE ABSENT [None]
  - SKIN DISCOLOURATION [None]
  - SUICIDE ATTEMPT [None]
